FAERS Safety Report 14160856 (Version 2)
Quarter: 2017Q4

REPORT INFORMATION
  Report Type: Spontaneous
  Country: US (occurrence: US)
  Receive Date: 20171106
  Receipt Date: 20171115
  Transmission Date: 20180321
  Serious: No
  Sender: FDA-Public Use
  Company Number: US-PFIZER INC-2017475169

PATIENT

DRUGS (1)
  1. NORVASC [Suspect]
     Active Substance: AMLODIPINE BESYLATE
     Dosage: 5 MG, 2X/DAY

REACTIONS (5)
  - Headache [Unknown]
  - Palpitations [Unknown]
  - Inappropriate schedule of drug administration [Unknown]
  - Presyncope [Unknown]
  - Dizziness [Unknown]
